FAERS Safety Report 11461660 (Version 1)
Quarter: 2015Q3

REPORT INFORMATION
  Report Type: Spontaneous
  Country: US (occurrence: US)
  Receive Date: 20150831
  Receipt Date: 20150831
  Transmission Date: 20151125
  Serious: No
  Sender: FDA-Public Use
  Company Number: US-ELI_LILLY_AND_COMPANY-US200908004039

PATIENT
  Sex: Female

DRUGS (2)
  1. CYMBALTA [Suspect]
     Active Substance: DULOXETINE HYDROCHLORIDE
     Dosage: 30 MG, OTHER
     Route: 048
     Dates: start: 2009, end: 20090811
  2. CYMBALTA [Suspect]
     Active Substance: DULOXETINE HYDROCHLORIDE
     Indication: DECREASED INTEREST
     Dosage: 30 MG, DAILY (1/D)
     Route: 048
     Dates: start: 200902, end: 2009

REACTIONS (6)
  - Influenza like illness [Recovered/Resolved]
  - Headache [Recovered/Resolved]
  - Nausea [Not Recovered/Not Resolved]
  - Feeling abnormal [Recovered/Resolved]
  - Motion sickness [Not Recovered/Not Resolved]
  - Off label use [Recovered/Resolved]

NARRATIVE: CASE EVENT DATE: 2009
